FAERS Safety Report 9404026 (Version 2)
Quarter: 2013Q3

REPORT INFORMATION
  Report Type: Report from Study
  Country: CA (occurrence: CA)
  Receive Date: 20130717
  Receipt Date: 20130718
  Transmission Date: 20140515
  Serious: Yes (Life-Threatening, Hospitalization)
  Sender: FDA-Public Use
  Company Number: CA-JNJFOC-20130706871

PATIENT
  Age: 55 Year
  Sex: Male
  Weight: 77.5 kg

DRUGS (3)
  1. REMICADE [Suspect]
     Indication: CROHN^S DISEASE
     Route: 042
     Dates: start: 20130709, end: 20130709
  2. REMICADE [Suspect]
     Indication: CROHN^S DISEASE
     Route: 042
     Dates: start: 20100820, end: 20130709
  3. TRAMACET [Concomitant]
     Route: 065

REACTIONS (6)
  - Inspiratory capacity decreased [Recovered/Resolved]
  - Abdominal discomfort [Recovered/Resolved]
  - Constipation [Recovered/Resolved]
  - Infusion related reaction [Recovered/Resolved]
  - Flushing [Recovered/Resolved]
  - Oxygen saturation decreased [Recovered/Resolved]
